FAERS Safety Report 4366452-0 (Version None)
Quarter: 2004Q2

REPORT INFORMATION
  Report Type: 
  Country: None (occurrence: None)
  Receive Date: 20040527
  Receipt Date: 20040405
  Transmission Date: 20050107
  Serious: No
  Sender: FDA-Public Use
  Company Number: US-BRISTOL-MYERS SQUIBB COMPANY-12551230

PATIENT
  Age: 68 Year
  Sex: Male

DRUGS (5)
  1. ERBITUX [Suspect]
     Indication: COLON CANCER
     Dosage: 2CD DOSE. FIRST INFUSION GIVEN ON 22-MAR-04 (400 MG)
     Route: 042
     Dates: start: 20040329, end: 20040329
  2. BENADRYL [Concomitant]
     Indication: PREMEDICATION
     Dosage: GIVEN AS PRE-MEDICATION BEFORE CETUXIMAB TREATMENTS ON 22-MAR-04 AND 29-MAR-04
     Route: 042
     Dates: start: 20040329, end: 20040329
  3. TYLENOL [Concomitant]
     Indication: PREMEDICATION
     Dosage: GIVEN AS PREMEDICATION BEFORE CETUXIMAB ON 22-MAR-04 AND 29-MAR-04
     Route: 048
     Dates: start: 20040329, end: 20040329
  4. SYNTHROID [Concomitant]
  5. COUMADIN [Concomitant]

REACTIONS (2)
  - DERMATITIS ACNEIFORM [None]
  - PRURITUS [None]
